FAERS Safety Report 11468398 (Version 2)
Quarter: 2015Q3

REPORT INFORMATION
  Report Type: Spontaneous
  Country: US (occurrence: US)
  Receive Date: 20150903
  Receipt Date: 20150903
  Transmission Date: 20151125
  Serious: No
  Sender: FDA-Public Use
  Company Number: US-ELI_LILLY_AND_COMPANY-US201108004996

PATIENT
  Age: 28 Year
  Sex: Female
  Weight: 63.49 kg

DRUGS (4)
  1. VICODIN [Concomitant]
     Active Substance: ACETAMINOPHEN\HYDROCODONE BITARTRATE
     Dosage: UNK, PRN
  2. LIDODERM [Concomitant]
     Active Substance: LIDOCAINE
  3. CYMBALTA [Suspect]
     Active Substance: DULOXETINE HYDROCHLORIDE
     Dosage: 40 MG, UNK
     Dates: start: 201108
  4. CYMBALTA [Suspect]
     Active Substance: DULOXETINE HYDROCHLORIDE
     Indication: NEURALGIA
     Dosage: 60 MG, QD
     Route: 048
     Dates: start: 201008, end: 201108

REACTIONS (2)
  - Hypoaesthesia [Recovered/Resolved]
  - Somatisation disorder [Recovered/Resolved]

NARRATIVE: CASE EVENT DATE: 201108
